FAERS Safety Report 9012824 (Version 1)
Quarter: 2013Q1

REPORT INFORMATION
  Report Type: Spontaneous
  Country: FR (occurrence: FR)
  Receive Date: 20130114
  Receipt Date: 20130114
  Transmission Date: 20140127
  Serious: Yes (Hospitalization)
  Sender: FDA-Public Use
  Company Number: FR-PFIZER INC-2013011947

PATIENT
  Age: 3 Year
  Sex: Female
  Weight: 16 kg

DRUGS (2)
  1. ADVIL ENFANTS ET NOURRISSONS [Suspect]
     Indication: RHINITIS
     Dosage: UNK
     Route: 048
     Dates: start: 20121119, end: 20121119
  2. BRONCHORECTINE AU CITRAL [Suspect]
     Indication: COUGH
     Dosage: UNK
     Route: 048
     Dates: start: 20121119, end: 20121119

REACTIONS (5)
  - Face oedema [Recovering/Resolving]
  - Lip oedema [Recovering/Resolving]
  - Eyelid oedema [Recovering/Resolving]
  - Oedema peripheral [Recovering/Resolving]
  - Urticaria [Recovering/Resolving]
